FAERS Safety Report 10080828 (Version 2)
Quarter: 2016Q1

REPORT INFORMATION
  Report Type: Spontaneous
  Country: US (occurrence: US)
  Receive Date: 20140416
  Receipt Date: 20160216
  Transmission Date: 20160525
  Serious: Yes (Other)
  Sender: FDA-Public Use
  Company Number: US-BAYER-2014-055495

PATIENT
  Age: 23 Year
  Sex: Female

DRUGS (4)
  1. YAZ [Suspect]
     Active Substance: DROSPIRENONE\ETHINYL ESTRADIOL
  2. ASPIRIN. [Concomitant]
     Active Substance: ASPIRIN
  3. OCELLA [Suspect]
     Active Substance: DROSPIRENONE\ETHINYL ESTRADIOL
  4. YASMIN [Suspect]
     Active Substance: DROSPIRENONE\ETHINYL ESTRADIOL

REACTIONS (7)
  - Injury [None]
  - Emotional distress [None]
  - Pulmonary embolism [None]
  - Pain [None]
  - Deep vein thrombosis [None]
  - Cerebrovascular accident [None]
  - Thrombosis [None]

NARRATIVE: CASE EVENT DATE: 200802
